FAERS Safety Report 14777171 (Version 1)
Quarter: 2018Q2

REPORT INFORMATION
  Report Type: Spontaneous
  Country: DE (occurrence: DE)
  Receive Date: 20180419
  Receipt Date: 20180419
  Transmission Date: 20180711
  Serious: Yes (Congenital Anomaly)
  Sender: FDA-Public Use
  Company Number: DE-TEVA-2018-DE-881604

PATIENT
  Age: 1 Day
  Sex: Male
  Weight: 2.94 kg

DRUGS (8)
  1. FOLSAEURE [Concomitant]
     Active Substance: FOLIC ACID
     Indication: PROPHYLAXIS OF NEURAL TUBE DEFECT
     Route: 064
     Dates: start: 20160920, end: 20170429
  2. PRESINOL 250 [Concomitant]
     Indication: GESTATIONAL HYPERTENSION
     Dosage: 60 [MG/D ]/ INITIAL 60MG/D, WEEK 7+2 TO 10+2 30MG/D, THEN INCREASE TO 60MG/D UNTIL DELIVERY
     Route: 064
  3. OMEPRAZOL [Concomitant]
     Active Substance: OMEPRAZOLE
     Indication: VOMITING IN PREGNANCY
     Dosage: 20 MILLIGRAM DAILY; 60 [MG/D ]/ INITIAL 60MG/D, WEEK 7+2 TO 10+2 30MG/D, THEN INCREASE TO 60MG/D UNT
     Route: 064
     Dates: start: 20160929, end: 20170429
  4. LANTUS [Concomitant]
     Active Substance: INSULIN GLARGINE
     Indication: GESTATIONAL DIABETES
     Dosage: 26 IU (INTERNATIONAL UNIT) DAILY; 60 [MG/D ]/ INITIAL 60MG/D, WEEK 7+2 TO 10+2 30MG/D, THEN INCREASE
     Route: 064
  5. DULOXETINE. [Suspect]
     Active Substance: DULOXETINE
     Indication: DEPRESSION
     Dosage: 60 [MG/D ]/ INITIAL 60MG/D, WEEK 7+2 TO 10+2 30MG/D, THEN INCREASE TO 60MG/D UNTIL DELIVERY
     Route: 064
     Dates: start: 20160810, end: 20170429
  6. L-THYROXIN [Concomitant]
     Active Substance: LEVOTHYROXINE SODIUM
     Indication: HYPOTHYROIDISM
     Dosage: 75 MICROGRAM DAILY; 60 [MG/D ]/ INITIAL 60MG/D, WEEK 7+2 TO 10+2 30MG/D, THEN INCREASE TO 60MG/D UNT
     Route: 064
     Dates: start: 20160810, end: 20170429
  7. ARIPIPRAZOL [Concomitant]
     Active Substance: ARIPIPRAZOLE
     Indication: PSYCHOTIC DISORDER
     Dosage: 5 MILLIGRAM DAILY; 60 [MG/D ]/ INITIAL 60MG/D, WEEK 7+2 TO 10+2 30MG/D, THEN INCREASE TO 60MG/D UNTI
     Route: 064
     Dates: start: 20160810, end: 20160921
  8. NOVORAPID [Concomitant]
     Active Substance: INSULIN ASPART
     Indication: GESTATIONAL DIABETES
     Dosage: 54 IU (INTERNATIONAL UNIT) DAILY; 60 [MG/D ]/ INITIAL 60MG/D, WEEK 7+2 TO 10+2 30MG/D, THEN INCREASE
     Route: 064

REACTIONS (2)
  - Hypospadias [Not Recovered/Not Resolved]
  - Foetal exposure during pregnancy [Unknown]

NARRATIVE: CASE EVENT DATE: 20170429
